FAERS Safety Report 8264921-4 (Version None)
Quarter: 2012Q2

REPORT INFORMATION
  Report Type: 
  Country: None (occurrence: None)
  Receive Date: 20120406
  Receipt Date: 20120330
  Transmission Date: 20120825
  Serious: Yes (Death)
  Sender: FDA-Public Use
  Company Number: JP-EISAI INC-E7389-01584-SPO-JP

PATIENT
  Sex: Female
  Weight: 30 kg

DRUGS (10)
  1. OPIOID [Concomitant]
  2. HALAVEN [Suspect]
     Indication: METASTASES TO BONE
  3. FAMOTIDINE [Concomitant]
     Route: 048
  4. HALAVEN [Suspect]
     Indication: METASTASES TO SKIN
  5. ZOMETA [Concomitant]
     Route: 041
  6. MS TWICELON [Concomitant]
     Route: 048
  7. MAGNESIUM SULFATE [Concomitant]
     Route: 048
  8. HALAVEN [Suspect]
     Route: 041
     Dates: start: 20110914, end: 20110914
  9. HALAVEN [Suspect]
     Indication: METASTASES TO LIVER
     Route: 041
     Dates: start: 20110928, end: 20110928
  10. LOXONIN [Concomitant]
     Route: 048

REACTIONS (1)
  - NEOPLASM MALIGNANT [None]
